FAERS Safety Report 6884063-X (Version None)
Quarter: 2010Q3

REPORT INFORMATION
  Report Type: 
  Country: None (occurrence: None)
  Receive Date: 20100729
  Receipt Date: 20100727
  Transmission Date: 20110219
  Serious: Yes (Death)
  Sender: FDA-Public Use
  Company Number: US-GILEAD-2010-0030684

PATIENT
  Sex: Female

DRUGS (10)
  1. LETAIRIS [Suspect]
     Indication: PULMONARY ARTERIAL HYPERTENSION
     Route: 048
     Dates: start: 20100702
  2. VIAGRA [Concomitant]
  3. DIGOXIN [Concomitant]
  4. ADVAIR DISKUS 100/50 [Concomitant]
  5. ASPIRIN [Concomitant]
  6. MEGESTROL ACETATE [Concomitant]
  7. REQUIP [Concomitant]
  8. CALCIUM [Concomitant]
  9. LOVASTATIN [Concomitant]
  10. GLUCOSAMINE [Concomitant]

REACTIONS (1)
  - DEATH [None]
